FAERS Safety Report 15154380 (Version 9)
Quarter: 2020Q1

REPORT INFORMATION
  Report Type: Other
  Country: US (occurrence: US)
  Receive Date: 20180717
  Receipt Date: 20200213
  Transmission Date: 20200409
  Serious: Yes (Hospitalization)
  Sender: FDA-Public Use
  Company Number: US-ACORDA-ACO_152160_2018

PATIENT
  Age: 60 Year
  Sex: Female

DRUGS (9)
  1. AMPYRA [Suspect]
     Active Substance: DALFAMPRIDINE
     Indication: GAIT DISTURBANCE
     Dosage: 10 MILLIGRAM, BID
     Route: 048
     Dates: start: 20190112
  2. DALFAMPRIDINE. [Suspect]
     Active Substance: DALFAMPRIDINE
     Indication: MULTIPLE SCLEROSIS
     Dosage: 10 MILLIGRAM, BID
     Route: 048
     Dates: start: 20181028
  3. OMEPRAZOLE. [Concomitant]
     Active Substance: OMEPRAZOLE
     Indication: PRODUCT USED FOR UNKNOWN INDICATION
     Dosage: UNK
     Route: 065
  4. DALFAMPRIDINE. [Suspect]
     Active Substance: DALFAMPRIDINE
     Indication: GAIT DISTURBANCE
     Dosage: 10 MILLIGRAM, BID
     Route: 048
     Dates: start: 20181120, end: 201901
  5. OXYCODONE HYDROCHLORIDE. [Concomitant]
     Active Substance: OXYCODONE HYDROCHLORIDE
     Indication: PRODUCT USED FOR UNKNOWN INDICATION
     Dosage: UNK
     Route: 065
  6. AMPYRA [Suspect]
     Active Substance: DALFAMPRIDINE
     Indication: MULTIPLE SCLEROSIS
     Dosage: 10 MG, Q 12 HRS
     Route: 048
     Dates: end: 201810
  7. COPAXONE [Concomitant]
     Active Substance: GLATIRAMER ACETATE
     Indication: PRODUCT USED FOR UNKNOWN INDICATION
     Dosage: 40 MG/ML; 40 MILLIGRAM, 3X/WK
     Route: 058
  8. PROZAC [Concomitant]
     Active Substance: FLUOXETINE HYDROCHLORIDE
     Indication: PRODUCT USED FOR UNKNOWN INDICATION
     Dosage: UNK
     Route: 065
  9. AMPYRA [Suspect]
     Active Substance: DALFAMPRIDINE
     Dosage: 10 MILLIGRAM, BID
     Route: 048

REACTIONS (20)
  - Limb discomfort [Unknown]
  - Motor dysfunction [Unknown]
  - Neuropathic arthropathy [Unknown]
  - Condition aggravated [Recovering/Resolving]
  - Depressed mood [Unknown]
  - Liver disorder [Unknown]
  - Anhedonia [Unknown]
  - Drug ineffective [Unknown]
  - Multiple sclerosis relapse [Unknown]
  - Pain in extremity [Not Recovered/Not Resolved]
  - Influenza [Unknown]
  - Therapy cessation [Recovered/Resolved]
  - Oedema [Not Recovered/Not Resolved]
  - Lymphoedema [Unknown]
  - Decreased interest [Unknown]
  - Arthropathy [Unknown]
  - Laboratory test abnormal [Unknown]
  - Gait disturbance [Recovering/Resolving]
  - Multiple sclerosis relapse [Unknown]
  - Apathy [Unknown]

NARRATIVE: CASE EVENT DATE: 201810
